FAERS Safety Report 10236738 (Version 2)
Quarter: 2014Q3

REPORT INFORMATION
  Report Type: Spontaneous
  Country: US (occurrence: US)
  Receive Date: 20140613
  Receipt Date: 20140910
  Transmission Date: 20150326
  Serious: Yes (Hospitalization)
  Sender: FDA-Public Use
  Company Number: US-GLAXOSMITHKLINE-A1076875A

PATIENT
  Age: 73 Year
  Sex: Male
  Weight: 71.1 kg

DRUGS (19)
  1. MORPHINE SULFATE. [Concomitant]
     Active Substance: MORPHINE SULFATE
  2. PROCHLORPERAZINE MALEATE. [Concomitant]
     Active Substance: PROCHLORPERAZINE MALEATE
  3. DORZOLAMIDE HYDROCHLORIDE. [Concomitant]
     Active Substance: DORZOLAMIDE HYDROCHLORIDE
  4. ASPIRIN. [Concomitant]
     Active Substance: ASPIRIN
  5. FLUCONAZOLE. [Concomitant]
     Active Substance: FLUCONAZOLE
  6. NEURONTIN [Concomitant]
     Active Substance: GABAPENTIN
  7. VOTRIENT [Suspect]
     Active Substance: PAZOPANIB HYDROCHLORIDE
     Indication: METASTASES TO BONE
     Dosage: 800MG PER DAY
     Route: 048
     Dates: start: 20140410, end: 20140610
  8. HYDROCODONE, ACETAMINOPHEN [Concomitant]
     Active Substance: ACETAMINOPHEN\HYDROCODONE BITARTRATE
  9. QUETIAPINE FUMARATE. [Concomitant]
     Active Substance: QUETIAPINE FUMARATE
  10. AUGMENTIN [Concomitant]
     Active Substance: AMOXICILLIN\CLAVULANATE POTASSIUM
  11. COSOPT [Concomitant]
     Active Substance: DORZOLAMIDE HYDROCHLORIDE\TIMOLOL MALEATE
  12. DEXILANT [Concomitant]
     Active Substance: DEXLANSOPRAZOLE
  13. LATANOPROST. [Concomitant]
     Active Substance: LATANOPROST
  14. TAMSULOSIN HYDROCHLORIDE. [Concomitant]
     Active Substance: TAMSULOSIN HYDROCHLORIDE
  15. XGEVA [Concomitant]
     Active Substance: DENOSUMAB
  16. LISINOPRIL. [Concomitant]
     Active Substance: LISINOPRIL
  17. DURAGESIC [Concomitant]
     Active Substance: FENTANYL
  18. FLOMAX [Concomitant]
     Active Substance: TAMSULOSIN HYDROCHLORIDE
  19. CARVEDILOL. [Concomitant]
     Active Substance: CARVEDILOL

REACTIONS (11)
  - Abdominal pain lower [Recovering/Resolving]
  - Pyrexia [Recovering/Resolving]
  - Bacteraemia [Recovering/Resolving]
  - Hypotension [Recovering/Resolving]
  - Haematuria [Recovering/Resolving]
  - Anaemia [Recovering/Resolving]
  - Hospice care [Recovering/Resolving]
  - Drug ineffective [Unknown]
  - Sepsis [Recovering/Resolving]
  - Disease progression [Unknown]
  - Urinary tract infection [Recovering/Resolving]

NARRATIVE: CASE EVENT DATE: 201405
